FAERS Safety Report 6380980-8 (Version None)
Quarter: 2009Q3

REPORT INFORMATION
  Report Type: 
  Country: None (occurrence: None)
  Receive Date: 20090929
  Receipt Date: 20090916
  Transmission Date: 20100115
  Serious: Yes (Hospitalization)
  Sender: FDA-Public Use
  Company Number: NL-PFIZER INC-2009270301

PATIENT
  Age: 72 Year

DRUGS (1)
  1. SOMATROPIN [Suspect]
     Indication: HYPOPITUITARISM
     Dosage: UNK
     Dates: end: 20061201

REACTIONS (2)
  - CIRCULATORY COLLAPSE [None]
  - SICK SINUS SYNDROME [None]
